FAERS Safety Report 25794369 (Version 1)
Quarter: 2025Q3

REPORT INFORMATION
  Report Type: Spontaneous
  Country: US (occurrence: US)
  Receive Date: 20250912
  Receipt Date: 20250912
  Transmission Date: 20251021
  Serious: No
  Sender: ASTELLAS
  Company Number: US-ASTELLAS-2025-AER-045460

PATIENT
  Age: 90 Year
  Sex: Female

DRUGS (2)
  1. MYRBETRIQ [Suspect]
     Active Substance: MIRABEGRON
     Indication: Hypertonic bladder
     Route: 048
     Dates: start: 2023
  2. MYRBETRIQ [Suspect]
     Active Substance: MIRABEGRON
     Dosage: EVERY OTHER DAY
     Route: 048

REACTIONS (5)
  - Cystitis [Recovering/Resolving]
  - Blood pressure increased [Unknown]
  - Pruritus [Not Recovered/Not Resolved]
  - Therapeutic response unexpected [Unknown]
  - Inappropriate schedule of product administration [Unknown]

NARRATIVE: CASE EVENT DATE: 20250801
